FAERS Safety Report 10690622 (Version 1)
Quarter: 2015Q1

REPORT INFORMATION
  Report Type: Spontaneous
  Country: ES (occurrence: None)
  Receive Date: 20150102
  Receipt Date: 20150102
  Transmission Date: 20150720
  Serious: Yes (Hospitalization)
  Sender: FDA-Public Use
  Company Number: ES-ZYDUS-006237

PATIENT
  Age: 61 Year
  Sex: Male

DRUGS (7)
  1. INSULIN RAPID [Concomitant]
     Active Substance: INSULIN NOS
  2. AMLODIPINE [Concomitant]
     Active Substance: AMLODIPINE BESYLATE
  3. ENOXAPARIN [Concomitant]
     Active Substance: ENOXAPARIN
  4. METOCLOPRAMIDE. [Concomitant]
     Active Substance: METOCLOPRAMIDE
  5. CITALOPRAM [Concomitant]
     Active Substance: CITALOPRAM HYDROBROMIDE
  6. ACICLOVIR (ACICLOVIR) [Suspect]
     Active Substance: ACYCLOVIR
     Indication: ENCEPHALITIS VIRAL
  7. ACETAMINOPHEN. [Concomitant]
     Active Substance: ACETAMINOPHEN

REACTIONS (4)
  - Hyponatraemia [None]
  - Oedema peripheral [None]
  - Alcoholism [None]
  - Embolic stroke [None]
